FAERS Safety Report 6614942-X (Version None)
Quarter: 2010Q1

REPORT INFORMATION
  Report Type: 
  Country: None (occurrence: None)
  Receive Date: 20100305
  Receipt Date: 20100226
  Transmission Date: 20100710
  Serious: Yes (Other)
  Sender: FDA-Public Use
  Company Number: CZ-ABBOTT-10P-217-0620517-00

PATIENT
  Sex: Female
  Weight: 125 kg

DRUGS (2)
  1. HUMIRA [Suspect]
     Indication: PSORIATIC ARTHROPATHY
     Route: 058
     Dates: start: 20091005, end: 20091201
  2. HUMIRA [Suspect]
     Route: 058
     Dates: start: 20100111

REACTIONS (3)
  - OEDEMA PERIPHERAL [None]
  - TENDON INJURY [None]
  - TENDON RUPTURE [None]
